FAERS Safety Report 11927254 (Version 2)
Quarter: 2016Q1

REPORT INFORMATION
  Report Type: Report from Study
  Country: KR (occurrence: KR)
  Receive Date: 20160119
  Receipt Date: 20160125
  Transmission Date: 20160526
  Serious: Yes (Hospitalization, Other)
  Sender: FDA-Public Use
  Company Number: KR-GILEAD-2016-0192510

PATIENT
  Age: 49 Year
  Sex: Male
  Weight: 67.7 kg

DRUGS (17)
  1. MULTIBLUE5 [Concomitant]
     Dosage: UNK
     Dates: start: 20140429, end: 20140429
  2. LEGALON [Concomitant]
     Active Substance: MILK THISTLE
     Dosage: UNK
     Dates: start: 20140430, end: 20140513
  3. EXJADE [Concomitant]
     Active Substance: DEFERASIROX
     Dosage: UNK
     Dates: start: 20140807
  4. SMOFLIPID [Concomitant]
     Active Substance: FISH OIL\OLIVEOIL\SOYBEAN OIL\TRIGLYCERIDES,UNSPECIFIED LENGTH
     Dosage: 20 %, UNK
     Dates: start: 20140430, end: 20140430
  5. FREAMINE III NOS [Concomitant]
     Active Substance: AMINO ACIDS
     Dosage: 10 %, UNK
     Dates: start: 20140501, end: 20140501
  6. TENOFOVIR DISOPROXIL FUMARATE. [Suspect]
     Active Substance: TENOFOVIR DISOPROXIL FUMARATE
     Indication: CHRONIC HEPATITIS B
     Dosage: 300 MG, UNK
     Route: 048
     Dates: start: 20140318, end: 20150930
  7. XARELTO [Concomitant]
     Active Substance: RIVAROXABAN
     Dosage: UNK
     Dates: start: 20140430, end: 20140513
  8. DICAMAX [Concomitant]
     Dosage: UNK
     Dates: start: 20150210, end: 20150325
  9. PHENIRAMINE [Concomitant]
     Active Substance: PHENIRAMINE
     Dosage: UNK
     Dates: start: 20140318, end: 20150831
  10. DEXAMETHASONE. [Concomitant]
     Active Substance: DEXAMETHASONE
     Dosage: UNK
     Dates: start: 20140610, end: 20150831
  11. BEECOM [Concomitant]
     Dosage: UNK
     Dates: start: 20150504, end: 20150604
  12. URSA [Concomitant]
     Dosage: UNK
     Dates: start: 20140430, end: 20140513
  13. MUCOSTEN [Concomitant]
     Dosage: UNK
     Dates: start: 20140429, end: 20140429
  14. AMIRAL [Concomitant]
     Dosage: 5.14 %, UNK
     Dates: start: 20140429
  15. CLINOLEIC [Concomitant]
     Dosage: 20 %, UNK
     Dates: start: 20140502, end: 20140502
  16. GLUCOPHAGE [Concomitant]
     Active Substance: METFORMIN HYDROCHLORIDE
     Dosage: UNK
     Dates: start: 20150504, end: 20150604
  17. IMOTON [Concomitant]
     Dosage: UNK
     Dates: start: 20141030

REACTIONS (1)
  - Deep vein thrombosis [Recovered/Resolved]

NARRATIVE: CASE EVENT DATE: 20140429
